FAERS Safety Report 14227516 (Version 3)
Quarter: 2017Q4

REPORT INFORMATION
  Report Type: Spontaneous
  Country: CN (occurrence: CN)
  Receive Date: 20171127
  Receipt Date: 20171208
  Transmission Date: 20180321
  Serious: Yes (Death, Other)
  Sender: FDA-Public Use
  Company Number: CN-BAYER-2017-227859

PATIENT
  Age: 52 Year
  Sex: Male

DRUGS (3)
  1. ULTRAVIST [Suspect]
     Active Substance: IOPROMIDE
     Indication: ANGIOGRAM
     Dosage: 65 ML, ONCE
     Route: 042
  2. ULTRAVIST [Suspect]
     Active Substance: IOPROMIDE
     Indication: ACUTE CORONARY SYNDROME
  3. ULTRAVIST [Suspect]
     Active Substance: IOPROMIDE
     Indication: IMAGING PROCEDURE

REACTIONS (13)
  - Loss of consciousness [None]
  - Fall [Fatal]
  - Respiratory arrest [None]
  - Mydriasis [None]
  - Eye disorder [None]
  - Blood disorder [None]
  - Blood pressure decreased [None]
  - Sudden death [Fatal]
  - Cardiac arrest [None]
  - Blood pressure immeasurable [None]
  - Heart rate decreased [None]
  - Electrocardiogram abnormal [None]
  - Ventricular arrhythmia [None]

NARRATIVE: CASE EVENT DATE: 20171116
